FAERS Safety Report 9562525 (Version 2)
Quarter: 2013Q3

REPORT INFORMATION
  Report Type: Spontaneous
  Country: DE (occurrence: DE)
  Receive Date: 20130927
  Receipt Date: 20130927
  Transmission Date: 20140515
  Serious: Yes (Death)
  Sender: FDA-Public Use
  Company Number: DE-SANOFI-AVENTIS-FABR-1003566

PATIENT
  Age: 77 Year
  Sex: Male

DRUGS (2)
  1. AGALSIDASE BETA [Suspect]
     Indication: FABRY^S DISEASE
     Dosage: UNK
     Route: 042
  2. AGALSIDASE BETA [Suspect]
     Indication: FABRY^S DISEASE
     Route: 065

REACTIONS (1)
  - Death [Fatal]
